FAERS Safety Report 17829308 (Version 1)
Quarter: 2020Q2

REPORT INFORMATION
  Report Type: Spontaneous
  Country: US (occurrence: US)
  Receive Date: 20200527
  Receipt Date: 20200527
  Transmission Date: 20200714
  Serious: Yes (Other)
  Sender: FDA-Public Use
  Company Number: None

PATIENT
  Sex: Female
  Weight: 51.75 kg

DRUGS (9)
  1. FLUTICASONE PROPIONATE. [Concomitant]
     Active Substance: FLUTICASONE PROPIONATE
  2. OXYCODONE [Concomitant]
     Active Substance: OXYCODONE
  3. CALCIUM AND VITAMIN D [Concomitant]
     Active Substance: CALCIUM\VITAMIN D
  4. FORTEO [Suspect]
     Active Substance: TERIPARATIDE
  5. RESTORIL [Concomitant]
     Active Substance: TEMAZEPAM
  6. CENTRUM [Concomitant]
     Active Substance: VITAMINS
  7. VITAMIN C [Concomitant]
     Active Substance: ASCORBIC ACID
  8. MONTELUKAST [Concomitant]
     Active Substance: MONTELUKAST SODIUM
  9. VITAMIN B12 [Concomitant]
     Active Substance: CYANOCOBALAMIN

REACTIONS (7)
  - Paraesthesia [None]
  - Pain in extremity [None]
  - Rash erythematous [None]
  - Product dispensing error [None]
  - Rash [None]
  - Product storage error [None]
  - Therapy interrupted [None]
